FAERS Safety Report 17946172 (Version 4)
Quarter: 2021Q1

REPORT INFORMATION
  Report Type: Report from Study
  Country: BR (occurrence: BR)
  Receive Date: 20200626
  Receipt Date: 20210324
  Transmission Date: 20210419
  Serious: Yes (Death, Hospitalization, Other)
  Sender: FDA-Public Use
  Company Number: BR-UCBSA-2020022255

PATIENT
  Age: 55 Year
  Sex: Female
  Weight: 85 kg

DRUGS (1)
  1. CERTOLIZUMAB PEGOL RA [Suspect]
     Active Substance: CERTOLIZUMAB PEGOL
     Indication: RHEUMATOID ARTHRITIS
     Dosage: 2 AMPOULES, MONTHLY (QM)
     Route: 058
     Dates: start: 20191119

REACTIONS (10)
  - COVID-19 [Recovered/Resolved]
  - Renal colic [Not Recovered/Not Resolved]
  - Malaise [Unknown]
  - Rheumatoid arthritis [Recovering/Resolving]
  - Gastrointestinal disorder [Unknown]
  - Constipation [Not Recovered/Not Resolved]
  - Vomiting [Not Recovered/Not Resolved]
  - Thrombosis [Not Recovered/Not Resolved]
  - Nosocomial infection [Fatal]
  - Dizziness [Unknown]

NARRATIVE: CASE EVENT DATE: 2019
